FAERS Safety Report 16344231 (Version 1)
Quarter: 2019Q2

REPORT INFORMATION
  Report Type: Spontaneous
  Country: US (occurrence: US)
  Receive Date: 20190522
  Receipt Date: 20190522
  Transmission Date: 20190711
  Serious: Yes (Hospitalization, Other)
  Sender: FDA-Public Use
  Company Number: US-MYLANLABS-2019M1048005

PATIENT
  Age: 71 Year
  Sex: Female
  Weight: 131.1 kg

DRUGS (4)
  1. LITHIUM MYLAN [Suspect]
     Active Substance: LITHIUM
     Dosage: 14 MILLIGRAM
     Route: 048
  2. LITHIUM MYLAN [Suspect]
     Active Substance: LITHIUM
     Dosage: 7 MILLIGRAM
     Route: 048
  3. LATUDA [Suspect]
     Active Substance: LURASIDONE HYDROCHLORIDE
     Indication: BIPOLAR DISORDER
     Dosage: UNK
     Route: 048
  4. LITHIUM MYLAN [Suspect]
     Active Substance: LITHIUM
     Indication: BIPOLAR DISORDER
     Dosage: 5 MILLIGRAM, BID
     Route: 048

REACTIONS (7)
  - Mania [Unknown]
  - Toxicity to various agents [Unknown]
  - Dysgraphia [Recovered/Resolved]
  - Tremor [Unknown]
  - Renal failure [Unknown]
  - Aphasia [Recovered/Resolved]
  - Dyskinesia [Unknown]

NARRATIVE: CASE EVENT DATE: 201809
